FAERS Safety Report 5236169-9 (Version None)
Quarter: 2007Q1

REPORT INFORMATION
  Report Type: 
  Country: None (occurrence: None)
  Receive Date: 20061208
  Receipt Date: 20060605
  Transmission Date: 20070707
  Serious: Yes (Other)
  Sender: FDA-Public Use
  Company Number: 2006UW10890

PATIENT
  Age: 52 Year
  Sex: Male
  Weight: 120.2 kg

DRUGS (4)
  1. CRESTOR [Suspect]
     Indication: BLOOD CHOLESTEROL INCREASED
     Dosage: 20 MG PO
     Route: 048
     Dates: start: 20060301
  2. CRESTOR [Suspect]
     Indication: BLOOD CHOLESTEROL INCREASED
     Dosage: 10 MG QD PO
     Route: 048
  3. ATENOLOL [Concomitant]
  4. QUINACRIL [Concomitant]

REACTIONS (2)
  - BLOOD URINE PRESENT [None]
  - DIARRHOEA [None]
